FAERS Safety Report 11194986 (Version 2)
Quarter: 2015Q3

REPORT INFORMATION
  Report Type: Spontaneous
  Country: US (occurrence: US)
  Receive Date: 20150617
  Receipt Date: 20150706
  Transmission Date: 20151125
  Serious: Yes (Hospitalization, Other)
  Sender: FDA-Public Use
  Company Number: US-AMGEN-USASP2015057428

PATIENT
  Age: 56 Year
  Sex: Female

DRUGS (2)
  1. ENBREL [Suspect]
     Active Substance: ETANERCEPT
     Indication: RHEUMATOID ARTHRITIS
     Dosage: 50 MG, QWK
     Route: 065
     Dates: start: 199711, end: 20141028
  2. CORTISONE [Concomitant]
     Active Substance: CORTISONE\HYDROCORTISONE
     Dosage: UNK
     Dates: start: 201410, end: 201410

REACTIONS (17)
  - Carpal tunnel syndrome [Recovered/Resolved]
  - Chondrocalcinosis pyrophosphate [Recovered/Resolved]
  - Arthralgia [Recovered/Resolved]
  - Elbow operation [Unknown]
  - Pain [Recovered/Resolved]
  - Oropharyngeal pain [Recovered/Resolved]
  - Synovial disorder [Recovered/Resolved]
  - Haemarthrosis [Recovered/Resolved]
  - Hypoaesthesia [Recovered/Resolved]
  - Musculoskeletal chest pain [Recovered/Resolved]
  - Pain in extremity [Recovered/Resolved]
  - Joint arthroplasty [Recovered/Resolved]
  - Sleep disorder [Recovered/Resolved]
  - Chondrocalcinosis [Recovered/Resolved]
  - Drug effect decreased [Unknown]
  - Post procedural complication [Unknown]
  - Procedural complication [Recovered/Resolved]

NARRATIVE: CASE EVENT DATE: 2012
